FAERS Safety Report 5113596-1 (Version None)
Quarter: 2006Q3

REPORT INFORMATION
  Report Type: 
  Country: None (occurrence: None)
  Receive Date: 20060921
  Receipt Date: 20060906
  Transmission Date: 20061208
  Serious: Yes (Life-Threatening, Hospitalization)
  Sender: FDA-Public Use
  Company Number: 2006S1004112

PATIENT
  Age: 47 Year
  Sex: Male
  Weight: 103.4201 kg

DRUGS (9)
  1. NORTRIPTYLINE HCL [Suspect]
     Indication: PAIN
     Dosage: 800 UG;PRN;ORAL
     Route: 048
     Dates: start: 20050523, end: 20060414
  2. MORPHINE SULFATE [Suspect]
     Dosage: 90 MG;QD;ORAL
     Route: 048
     Dates: start: 20020101
  3. CLONIDINE HCL [Suspect]
     Dosage: 50 MG;QD;ORAL
     Route: 048
     Dates: start: 20020101
  4. HYDROMORPHONE HYDROCHLORIDE [Suspect]
     Dosage: 5 MG;QD;ORAL
     Route: 048
     Dates: start: 20020101
  5. NORTRIPTYLINE CAPSULES, USP [Suspect]
     Indication: MIGRAINE
     Dosage: 10 MG;QD;ORAL
     Route: 048
     Dates: start: 20050808
  6. LISINOPRIL [Suspect]
     Indication: HYPERTENSION
     Dosage: 10 MG; QD;ORAL
     Route: 048
     Dates: start: 20060410
  7. DIVALPROEX SODIUM [Suspect]
     Indication: MIGRAINE
     Dosage: 500 MG;QD;PO
     Route: 048
     Dates: start: 20060330
  8. TEMAZEPAM [Suspect]
     Indication: INSOMNIA
     Dosage: 30 MG;QD;PO
     Route: 048
     Dates: start: 20050808
  9. LANSOPRAZOLE [Suspect]
     Indication: PROPHYLAXIS
     Dosage: 30 MG;QD;PO
     Route: 048
     Dates: start: 20060410

REACTIONS (11)
  - ALCOHOL USE [None]
  - BODY TEMPERATURE INCREASED [None]
  - FAMILY STRESS [None]
  - FATIGUE [None]
  - HYPOTENSION [None]
  - INTENTIONAL OVERDOSE [None]
  - LOSS OF CONSCIOUSNESS [None]
  - MENTAL STATUS CHANGES [None]
  - MIGRAINE [None]
  - RESPIRATORY DISTRESS [None]
  - SUICIDE ATTEMPT [None]
